FAERS Safety Report 10163670 (Version 2)
Quarter: 2014Q4

REPORT INFORMATION
  Report Type: Spontaneous
  Country: AU (occurrence: AU)
  Receive Date: 20140509
  Receipt Date: 20141208
  Transmission Date: 20150528
  Serious: Yes (Other)
  Sender: FDA-Public Use
  Company Number: AU-ABBVIE-14P-008-1232005-00

PATIENT
  Age: 27 Year
  Sex: Female

DRUGS (8)
  1. METHOTREXATE [Suspect]
     Active Substance: METHOTREXATE
     Indication: ARTHRITIS
     Route: 065
  2. METHOTREXATE [Suspect]
     Active Substance: METHOTREXATE
     Route: 065
  3. PREDNISONE. [Concomitant]
     Active Substance: PREDNISONE
     Route: 065
  4. SODIUM AUROTHIOMALATE [Concomitant]
     Indication: ARTHRITIS
     Route: 065
  5. HYDROXYCHLOROQUINE [Concomitant]
     Active Substance: HYDROXYCHLOROQUINE
     Indication: ARTHRITIS
     Route: 065
  6. PREDNISONE. [Concomitant]
     Active Substance: PREDNISONE
     Indication: RHEUMATOID ARTHRITIS
     Route: 065
  7. PREDNISONE. [Concomitant]
     Active Substance: PREDNISONE
     Route: 065
  8. ADALIMUMAB [Suspect]
     Active Substance: ADALIMUMAB
     Indication: RHEUMATOID ARTHRITIS
     Route: 058
     Dates: start: 20040915, end: 20040915

REACTIONS (14)
  - Granuloma [Recovered/Resolved]
  - Night sweats [Recovered/Resolved]
  - Rash erythematous [Recovered/Resolved]
  - Arthralgia [Recovered/Resolved]
  - Joint effusion [Recovered/Resolved]
  - Erythema nodosum [Recovered/Resolved]
  - Weight decreased [Recovered/Resolved]
  - Hilar lymphadenopathy [Recovered/Resolved]
  - Cough [Recovered/Resolved]
  - Sarcoidosis [Recovered/Resolved]
  - Dyspnoea [Recovered/Resolved]
  - Lymphadenitis [Recovered/Resolved]
  - Pyrexia [Recovered/Resolved]
  - Lymphadenopathy mediastinal [Recovered/Resolved]
